FAERS Safety Report 9173632 (Version 1)
Quarter: 2013Q1

REPORT INFORMATION
  Report Type: Spontaneous
  Country: US (occurrence: None)
  Receive Date: 20130318
  Receipt Date: 20130318
  Transmission Date: 20140127
  Serious: Yes (Other)
  Sender: FDA-Public Use
  Company Number: None

PATIENT
  Age: 21 Year
  Sex: Female
  Weight: 47.63 kg

DRUGS (1)
  1. CITALOPRAM 20MG DR REDDYS [Suspect]
     Indication: DEPRESSION
     Route: 048
     Dates: start: 20130308, end: 20130313

REACTIONS (6)
  - Decreased appetite [None]
  - Insomnia [None]
  - Self-injurious ideation [None]
  - Anxiety [None]
  - Headache [None]
  - Depression [None]
